FAERS Safety Report 7661103-1 (Version None)
Quarter: 2011Q3

REPORT INFORMATION
  Report Type: 
  Country: None (occurrence: None)
  Receive Date: 20110805
  Receipt Date: 20100929
  Transmission Date: 20111222
  Serious: No
  Sender: FDA-Public Use
  Company Number: US-ABBOTT-10P-163-0675363-00

PATIENT
  Sex: Female
  Weight: 88.53 kg

DRUGS (20)
  1. CARVEDILOL [Concomitant]
     Indication: CARDIOVASCULAR DISORDER
     Route: 048
  2. PLAVIX [Concomitant]
     Indication: STENT PLACEMENT
  3. NITROGLYCERIN [Concomitant]
     Indication: CHEST PAIN
     Dosage: PRN
  4. FUROSEMIDE [Concomitant]
     Indication: CARDIAC FAILURE CONGESTIVE
  5. SPIRONOLACTONE [Concomitant]
     Indication: BLOOD PRESSURE
  6. M.V.I. [Concomitant]
     Indication: PRODUCT USED FOR UNKNOWN INDICATION
  7. VIT D [Concomitant]
     Indication: VITAMIN D DECREASED
     Dates: start: 20100501
  8. ALLOPURINOL [Concomitant]
     Indication: GOUT
  9. TRAMADOL HCL [Concomitant]
     Indication: PAIN
     Dosage: PRN
  10. NIASPAN [Suspect]
     Dates: start: 20100923
  11. ASPIRIN [Concomitant]
     Indication: CARDIOVASCULAR DISORDER
  12. LYRICA [Concomitant]
     Indication: PHARYNGEAL DISORDER
     Dosage: PRN
  13. CALCIUM PILL [Concomitant]
     Indication: BLOOD CALCIUM DECREASED
  14. ISORBIDE [Concomitant]
     Indication: CHEST DISCOMFORT
  15. NIASPAN [Suspect]
     Indication: BLOOD CHOLESTEROL INCREASED
     Dates: start: 20100915, end: 20100922
  16. TIZANIDINE HCL [Concomitant]
     Indication: MUSCLE RELAXANT THERAPY
  17. ALPRAZOLAM [Concomitant]
     Indication: ANXIETY
  18. UNKNOWN COUGH MEDICATION [Concomitant]
     Indication: COUGH
     Dosage: PRN
  19. HUMALOG [Concomitant]
     Indication: DIABETES MELLITUS
     Dosage: SLIDING SCALE
  20. LANTUS [Concomitant]
     Indication: DIABETES MELLITUS
     Dosage: 85 UNITS IN AM AND 90 UNITS IN PM

REACTIONS (3)
  - JOINT CONTRACTURE [None]
  - MYALGIA [None]
  - FEELING ABNORMAL [None]
